FAERS Safety Report 23389572 (Version 1)
Quarter: 2024Q1

REPORT INFORMATION
  Report Type: Spontaneous
  Country: US (occurrence: US)
  Receive Date: 20240110
  Receipt Date: 20240110
  Transmission Date: 20240410
  Serious: No
  Sender: FDA-Public Use
  Company Number: US-009507513-2401USA004545

PATIENT
  Age: 57 Year
  Sex: Female

DRUGS (3)
  1. MOLNUPIRAVIR [Suspect]
     Active Substance: MOLNUPIRAVIR
     Indication: COVID-19 treatment
     Dosage: 4 PILLS, BID
     Route: 048
     Dates: start: 20240102
  2. LISINOPRIL [Concomitant]
     Active Substance: LISINOPRIL
  3. ROSUVASTATIN [Concomitant]
     Active Substance: ROSUVASTATIN
     Indication: Blood cholesterol increased
     Dosage: UNK
     Dates: end: 20240105

REACTIONS (7)
  - Productive cough [Not Recovered/Not Resolved]
  - Panic attack [Not Recovered/Not Resolved]
  - Nasal congestion [Not Recovered/Not Resolved]
  - Bone pain [Not Recovered/Not Resolved]
  - Gait disturbance [Not Recovered/Not Resolved]
  - Product physical issue [Unknown]
  - Poor quality product administered [Unknown]

NARRATIVE: CASE EVENT DATE: 20240102
